FAERS Safety Report 5067738-7 (Version None)
Quarter: 2006Q3

REPORT INFORMATION
  Report Type: 
  Country: None (occurrence: None)
  Receive Date: 20060706
  Receipt Date: 20060307
  Transmission Date: 20061208
  Serious: No
  Sender: FDA-Public Use
  Company Number: 200512412BWH

PATIENT
  Age: 64 Year
  Sex: Male
  Weight: 99.7913 kg

DRUGS (5)
  1. LEVITRA [Suspect]
     Dosage: 20 MG ONCE ORAL
     Route: 048
     Dates: start: 20051001
  2. TOPOROL [Concomitant]
  3. VERAPAMIL [Concomitant]
  4. HYDROCHLOROTHIAZIDE [Concomitant]
  5. PLAVIX [Concomitant]

REACTIONS (4)
  - DRUG INEFFECTIVE [None]
  - GASTROOESOPHAGEAL REFLUX DISEASE [None]
  - OESOPHAGEAL DISCOMFORT [None]
  - OESOPHAGEAL PAIN [None]
